FAERS Safety Report 20988204 (Version 2)
Quarter: 2022Q3

REPORT INFORMATION
  Report Type: Spontaneous
  Country: PH (occurrence: PH)
  Receive Date: 20220621
  Receipt Date: 20220701
  Transmission Date: 20221027
  Serious: Yes (Other)
  Sender: FDA-Public Use
  Company Number: PH-OTSUKA-2022_032305

PATIENT
  Age: 91 Year
  Sex: Male

DRUGS (2)
  1. SAMSCA [Suspect]
     Active Substance: TOLVAPTAN
     Indication: Polyuria
     Dosage: 15 MG, QD
     Route: 048
     Dates: start: 20220522, end: 20220614
  2. FUROSEMIDE [Suspect]
     Active Substance: FUROSEMIDE
     Indication: Product used for unknown indication
     Dosage: 40 MG
     Route: 065

REACTIONS (5)
  - Pulmonary oedema [Recovering/Resolving]
  - Oedema peripheral [Unknown]
  - Drug effect less than expected [Unknown]
  - Asthenia [Unknown]
  - Product use in unapproved indication [Unknown]

NARRATIVE: CASE EVENT DATE: 20220522
